FAERS Safety Report 21339873 (Version 1)
Quarter: 2022Q3

REPORT INFORMATION
  Report Type: Spontaneous
  Country: US (occurrence: US)
  Receive Date: 20220915
  Receipt Date: 20220915
  Transmission Date: 20221027
  Serious: Yes (Death, Other)
  Sender: FDA-Public Use
  Company Number: US-BRISTOL-MYERS SQUIBB COMPANY-2022-104433

PATIENT
  Age: 74 Year
  Sex: Male

DRUGS (2)
  1. POMALYST [Suspect]
     Active Substance: POMALIDOMIDE
     Indication: Blood osmolarity decreased
     Dosage: FOR 3 WEEKS ON AND 1 WEEK OFF
     Route: 048
     Dates: start: 20181106
  2. POMALYST [Suspect]
     Active Substance: POMALIDOMIDE
     Indication: Hyponatraemia

REACTIONS (2)
  - Death [Fatal]
  - Intentional product use issue [Unknown]
